FAERS Safety Report 4291653-X (Version None)
Quarter: 2004Q1

REPORT INFORMATION
  Report Type: 
  Country: None (occurrence: None)
  Receive Date: 20040211
  Receipt Date: 20031204
  Transmission Date: 20041129
  Serious: No
  Sender: FDA-Public Use
  Company Number: US-GLAXOSMITHKLINE-A0441992A

PATIENT
  Age: 42 Year
  Sex: Female

DRUGS (1)
  1. IMITREX [Suspect]
     Indication: MIGRAINE
     Route: 058
     Dates: start: 20031101

REACTIONS (3)
  - HEART RATE INCREASED [None]
  - HOT FLUSH [None]
  - INJECTION SITE PAIN [None]
